FAERS Safety Report 7366814-3 (Version None)
Quarter: 2011Q1

REPORT INFORMATION
  Report Type: 
  Country: None (occurrence: None)
  Receive Date: 20110322
  Receipt Date: 20110320
  Transmission Date: 20110831
  Serious: Yes (Other)
  Sender: FDA-Public Use
  Company Number: DZ-ROCHE-766357

PATIENT
  Age: 40 Year
  Sex: Female

DRUGS (2)
  1. AVASTIN [Suspect]
     Indication: BREAST CANCER
     Dosage: FREQ: PER CURE, STOP DATE: 2011
     Route: 065
     Dates: start: 20101101
  2. PACLITAXEL [Suspect]
     Indication: BREAST CANCER
     Dosage: FREQ: PER CURE, STOP DATE: 2011
     Route: 065
     Dates: start: 20101101

REACTIONS (3)
  - SKIN ULCER [None]
  - DISEASE PROGRESSION [None]
  - SKIN ULCER HAEMORRHAGE [None]
